FAERS Safety Report 9684062 (Version 3)
Quarter: 2013Q4

REPORT INFORMATION
  Report Type: Report from Study
  Country: US (occurrence: US)
  Receive Date: 20131112
  Receipt Date: 20131122
  Transmission Date: 20140711
  Serious: Yes (Hospitalization)
  Sender: FDA-Public Use
  Company Number: US-JNJFOC-20131102492

PATIENT
  Age: 18 Year
  Sex: Female
  Weight: 71.9 kg

DRUGS (7)
  1. REMICADE [Suspect]
     Indication: INFLAMMATORY BOWEL DISEASE
     Route: 042
     Dates: start: 20081018, end: 20090912
  2. 6-MP [Suspect]
     Indication: PRODUCT USED FOR UNKNOWN INDICATION
     Route: 065
  3. HUMIRA [Concomitant]
     Route: 065
     Dates: start: 20091002, end: 20130327
  4. ANTIBIOTIC [Concomitant]
     Indication: INFLAMMATORY BOWEL DISEASE
     Route: 065
  5. 5-ASA [Concomitant]
     Route: 048
  6. LEVSIN [Concomitant]
     Route: 065
  7. VALIUM [Concomitant]
     Route: 065

REACTIONS (1)
  - Pancreatitis [Recovered/Resolved]
